FAERS Safety Report 8081246 (Version 5)
Quarter: 2013Q2

REPORT INFORMATION
  Report Type: Spontaneous
  Country: US (occurrence: US)
  Receive Date: 20110809
  Receipt Date: 20130417
  Transmission Date: 20140414
  Serious: No
  Sender: FDA-Public Use
  Company Number: US-BIOGENIDEC-2011BI029018

PATIENT
  Age: 61 Year
  Sex: Female

DRUGS (5)
  1. TYSABRI [Suspect]
     Indication: MULTIPLE SCLEROSIS
     Route: 042
  2. TYSABRI [Suspect]
     Indication: MULTIPLE SCLEROSIS
     Route: 042
     Dates: start: 20091002, end: 20100824
  3. TYSABRI [Suspect]
     Indication: MULTIPLE SCLEROSIS
     Route: 042
     Dates: start: 20110714, end: 20110714
  4. AVONEX [Concomitant]
     Indication: MULTIPLE SCLEROSIS
     Route: 030
  5. AMPYRA [Concomitant]
     Indication: MULTIPLE SCLEROSIS

REACTIONS (10)
  - Urinary incontinence [Not Recovered/Not Resolved]
  - Incontinence [Recovered/Resolved]
  - Joint stiffness [Recovered/Resolved]
  - Gait disturbance [Not Recovered/Not Resolved]
  - Abasia [Recovered/Resolved]
  - General symptom [Recovered/Resolved]
  - Muscular weakness [Recovered/Resolved]
  - Fatigue [Not Recovered/Not Resolved]
  - Chills [Recovered/Resolved]
  - Pyrexia [Recovered/Resolved]
